FAERS Safety Report 10262660 (Version 2)
Quarter: 2014Q2

REPORT INFORMATION
  Report Type: Report from Study
  Country: US (occurrence: US)
  Receive Date: 20140626
  Receipt Date: 20140626
  Transmission Date: 20141212
  Serious: Yes (Other)
  Sender: FDA-Public Use
  Company Number: US-MYLANLABS-2012S1014821

PATIENT
  Age: 13 Year
  Sex: Male

DRUGS (7)
  1. CLOZAPINE TABLETS [Suspect]
     Route: 048
     Dates: end: 20130801
  2. CLOZAPINE TABLETS [Suspect]
     Route: 048
     Dates: start: 20130805
  3. CLOZAPINE TABLETS [Suspect]
     Indication: SCHIZOPHRENIA
     Route: 048
     Dates: end: 20130801
  4. CLOZAPINE TABLETS [Suspect]
     Indication: SCHIZOPHRENIA
     Route: 048
     Dates: start: 20130805
  5. LEVOTHYROXINE [Concomitant]
  6. LITHIUM [Concomitant]
  7. HALOPERIDOL [Concomitant]

REACTIONS (2)
  - Granulocytopenia [Recovered/Resolved]
  - Leukopenia [Recovered/Resolved]
